FAERS Safety Report 7331494-X (Version None)
Quarter: 2011Q1

REPORT INFORMATION
  Report Type: 
  Country: None (occurrence: None)
  Receive Date: 20110228
  Receipt Date: 20110228
  Transmission Date: 20110831
  Serious: No
  Sender: FDA-Public Use
  Company Number: None

PATIENT
  Sex: Male
  Weight: 80.7403 kg

DRUGS (2)
  1. COPEGUS [Suspect]
     Indication: HEPATITIS C
     Dosage: 1200MG DAILY PO
     Route: 048
     Dates: start: 20090215, end: 20100202
  2. PEGASYS [Suspect]
     Indication: HEPATITIS C
     Dosage: 180MCG INJECTION WEEKLY PO
     Route: 048
     Dates: start: 20090215, end: 20100202

REACTIONS (4)
  - GAIT DISTURBANCE [None]
  - DEPRESSION [None]
  - IMPAIRED WORK ABILITY [None]
  - FATIGUE [None]
